FAERS Safety Report 14166585 (Version 1)
Quarter: 2017Q4

REPORT INFORMATION
  Report Type: Spontaneous
  Country: US (occurrence: US)
  Receive Date: 20171106
  Receipt Date: 20171106
  Transmission Date: 20180321
  Serious: Yes (Life-Threatening, Hospitalization, Disabling, Other)
  Sender: FDA-Public Use
  Company Number: None

PATIENT
  Sex: Female
  Weight: 97.2 kg

DRUGS (18)
  1. CETIRIZINE [Concomitant]
     Active Substance: CETIRIZINE HYDROCHLORIDE
  2. FUROSEMIDE. [Concomitant]
     Active Substance: FUROSEMIDE
  3. GABAPENTIN. [Concomitant]
     Active Substance: GABAPENTIN
  4. XANAX [Concomitant]
     Active Substance: ALPRAZOLAM
  5. SPRINTEC [Concomitant]
     Active Substance: ETHINYL ESTRADIOL\NORGESTIMATE
  6. METFORMIN [Concomitant]
     Active Substance: METFORMIN HYDROCHLORIDE
  7. PRAZOSIN. [Concomitant]
     Active Substance: PRAZOSIN
  8. FENOFIBRATE. [Concomitant]
     Active Substance: FENOFIBRATE
  9. EPINEPHRINE. [Concomitant]
     Active Substance: EPINEPHRINE
  10. ESOMEPRAZOLE [Concomitant]
     Active Substance: ESOMEPRAZOLE
  11. RANITIDINE. [Concomitant]
     Active Substance: RANITIDINE
  12. IBUPROFEN. [Concomitant]
     Active Substance: IBUPROFEN
  13. VENLAFAXINE [Concomitant]
     Active Substance: VENLAFAXINE HYDROCHLORIDE
  14. FERROUS SULFATE. [Concomitant]
     Active Substance: FERROUS SULFATE
  15. ADVAIR DISKUS [Suspect]
     Active Substance: FLUTICASONE PROPIONATE\SALMETEROL XINAFOATE
     Indication: CHRONIC OBSTRUCTIVE PULMONARY DISEASE
     Dosage: OTHER STRENGTH:MCG;QUANTITY:60 BLISTERS;?
     Route: 048
     Dates: start: 20170614, end: 20170615
  16. TRAZODONE [Concomitant]
     Active Substance: TRAZODONE HYDROCHLORIDE
  17. FLUTICASONE. [Concomitant]
     Active Substance: FLUTICASONE
  18. LAMOTRIGINE. [Concomitant]
     Active Substance: LAMOTRIGINE

REACTIONS (1)
  - Anaphylactic shock [None]

NARRATIVE: CASE EVENT DATE: 20170614
